FAERS Safety Report 25823474 (Version 1)
Quarter: 2025Q3

REPORT INFORMATION
  Report Type: Spontaneous
  Country: CN (occurrence: CN)
  Receive Date: 20250919
  Receipt Date: 20250919
  Transmission Date: 20251021
  Serious: Yes (Other)
  Sender: CSL BEHRING
  Company Number: CN-BEH-2025219145

PATIENT
  Age: 67 Year
  Sex: Male
  Weight: 63 kg

DRUGS (2)
  1. ALBURX [Suspect]
     Active Substance: ALBUMIN HUMAN
     Indication: Hypoalbuminaemia
     Dosage: 30 G, QD
     Route: 041
     Dates: start: 20250908, end: 20250910
  2. ALBURX [Suspect]
     Active Substance: ALBUMIN HUMAN
     Dosage: 30 G, BID (GIVEN TWICE)
     Route: 041
     Dates: start: 20250910

REACTIONS (7)
  - Chills [Recovered/Resolved]
  - Pallor [Recovered/Resolved]
  - Body temperature increased [Recovered/Resolved]
  - Heart rate increased [Recovered/Resolved]
  - Respiratory rate increased [Recovered/Resolved]
  - Chills [Recovered/Resolved]
  - Body temperature increased [Recovered/Resolved]

NARRATIVE: CASE EVENT DATE: 20250908
